FAERS Safety Report 10692057 (Version 2)
Quarter: 2015Q1

REPORT INFORMATION
  Report Type: Report from Study
  Country: US (occurrence: US)
  Receive Date: 20150106
  Receipt Date: 20150106
  Transmission Date: 20150720
  Serious: Yes (Hospitalization, Other)
  Sender: FDA-Public Use
  Company Number: US-TAKEDA-2014MPI002786

PATIENT
  Age: 18 Year
  Sex: Male
  Weight: 71.1 kg

DRUGS (9)
  1. VELCADE [Suspect]
     Active Substance: BORTEZOMIB
     Indication: PLASMA CELL MYELOMA
     Dosage: 1.3 MG/M2, OVER 3-5 SECONDS ON DAYS 1, 4 AND 8
     Route: 040
     Dates: start: 20140714
  2. CYTARABINE. [Suspect]
     Active Substance: CYTARABINE
     Dosage: 1000 MG/M2/DOSE OR 33 MG/KG/DOSE (IF BSA { 0.6 M2)  BID OVER 1-3 HOURS ON DAYS 1-4
     Route: 042
  3. ETOPOSIDE. [Suspect]
     Active Substance: ETOPOSIDE
     Indication: PLASMA CELL MYELOMA
     Dosage: 100 MG/M2/DOSE OR 3.3 MG/KG/DOSE (IF BSA { 0.6 M2) OVER 60-120 MINUTES ON DAYS 1-5
     Route: 042
     Dates: start: 20140714
  4. CYTARABINE. [Suspect]
     Active Substance: CYTARABINE
     Dosage: CYTARABINE: 20-70 MG (AGE BASED DOSING) IT ON DAY 1
     Route: 037
     Dates: start: 20140924, end: 20140929
  5. DAUNORUBICIN HYDROCHLORIDE. [Suspect]
     Active Substance: DAUNORUBICIN HYDROCHLORIDE
     Indication: PLASMA CELL MYELOMA
     Dosage: 50 MG/M2/DOSE OR 1.7 MG/KG/DOSE (IF BSA { 0.6 M2)  OVER 1-15 MINUTES ON DAYS 1, 3 AND 5
     Route: 042
     Dates: start: 20140714, end: 20140823
  6. CYTARABINE. [Suspect]
     Active Substance: CYTARABINE
     Indication: PLASMA CELL MYELOMA
     Dosage: 20-70MG (AGE BASED DOSING), ON DAY 1
     Route: 037
     Dates: start: 20140714, end: 20140929
  7. CYTARABINE. [Suspect]
     Active Substance: CYTARABINE
     Dosage: 100 MG/M2/DOSE OR 3.3 MG/KG/DOSE (IF BSA { 0.6 M2)  BID OVER 15-30 MINUTES ON DAYS 1-8
     Route: 042
     Dates: start: 20140714
  8. VELCADE [Suspect]
     Active Substance: BORTEZOMIB
     Dosage: 1.3 MG/M2, OVER 3-5 SECONDS ON DAYS 1, 4 AND 8
     Route: 042
     Dates: start: 20140924, end: 20141001
  9. ETOPOSIDE. [Suspect]
     Active Substance: ETOPOSIDE
     Dosage: 150 MG/M2/DOSE OR 5 MG/KG/DOSE (IF BSA { 0.6M2) OVER 60-120 MINUTES ON DAYS 1-5
     Route: 042
     Dates: start: 20140924, end: 20140928

REACTIONS (5)
  - Activated partial thromboplastin time [Recovered/Resolved]
  - Pericardial effusion [Not Recovered/Not Resolved]
  - Hyponatraemia [Not Recovered/Not Resolved]
  - Pericarditis [Not Recovered/Not Resolved]
  - Hypoxia [Not Recovered/Not Resolved]

NARRATIVE: CASE EVENT DATE: 20141003
